FAERS Safety Report 8949452 (Version 1)
Quarter: 2012Q4

REPORT INFORMATION
  Report Type: 
  Country: US (occurrence: US)
  Receive Date: 20121206
  Receipt Date: 20121206
  Transmission Date: 20130627
  Serious: Yes (Other)
  Sender: FDA-Public Use
  Company Number: US-PFIZER INC-2012305686

PATIENT
  Age: 55 Year
  Sex: Female
  Weight: 111.11 kg

DRUGS (4)
  1. LYRICA [Suspect]
     Indication: FIBROMYALGIA
     Dosage: 150 mg, 1x/day
     Route: 048
     Dates: start: 2011
  2. LYRICA [Suspect]
     Dosage: 450 mg, 1x/day
     Route: 048
  3. GABAPENTIN [Suspect]
     Dosage: UNK
  4. GABAPENTIN [Suspect]
     Dosage: 600 mg, UNK

REACTIONS (9)
  - Herpes zoster ophthalmic [Unknown]
  - Fall [Unknown]
  - Head injury [Unknown]
  - Weight increased [Unknown]
  - Agitation [Unknown]
  - Confusional state [Unknown]
  - Body height decreased [Unknown]
  - Pain [Unknown]
  - Back disorder [Unknown]
